FAERS Safety Report 9305221 (Version 6)
Quarter: 2013Q3

REPORT INFORMATION
  Report Type: Spontaneous
  Country: IL (occurrence: None)
  Receive Date: 20130520
  Receipt Date: 20130722
  Transmission Date: 20140515
  Serious: Yes (Life-Threatening, Hospitalization)
  Sender: FDA-Public Use
  Company Number: SYM-2013-03853

PATIENT
  Age: 70 Year
  Sex: Female

DRUGS (13)
  1. 5 FU [Suspect]
     Indication: COLORECTAL CANCER METASTATIC
     Dosage: 600 MG, EVERY CYCLE, INTRAVENOUS BOLUS
     Route: 040
     Dates: start: 20130106, end: 20130106
  2. AFLIBERCEPT [Suspect]
     Indication: COLORECTAL CANCER METASTATIC
     Dosage: 200 MG, EVERY CYCLE, INTRAVENOUS DRIP
     Route: 041
     Dates: start: 20130106, end: 20130106
  3. IRINOTECAN [Suspect]
     Indication: COLORECTAL CANCER METASTATIC
     Dosage: 260 MG, EVERY CYCLE, INTRAVENOUS DRIP
     Route: 041
     Dates: start: 20130106, end: 20130106
  4. LEUCOVORIN [Suspect]
     Indication: COLORECTAL CANCER METASTATIC
     Dosage: 600 MG, EVERY CYCLE, INTRAVENOUS DRIP
     Route: 041
     Dates: start: 20130106, end: 20130106
  5. LACRIMOL (LACRIMOL /00569401/) (METHYLTHIONINIUM CHLORIDE, SODIUM BORATE, POVIDONE, HYETELLOSE, BORIC ACID) [Concomitant]
  6. LORIVAN (LORAZEPAM) (LORAZEPAM) [Concomitant]
  7. ANTIEMETICS AND ANTINAUSEANTS (ANTIEMETICS AND ANTINAUSEANTS) [Concomitant]
  8. PROTON PUMP INHIBITORS (PROTON PUMP INHIBITORS) [Concomitant]
  9. CALCIUM CHANNEL BLOCKERS (CALCIUM CHANNEL BLOCKERS) [Concomitant]
  10. ACE INHIBITOR NOS (ACE INHIBITORS) (NULL) [Concomitant]
  11. ANTIBIOTICS (ANTIBIOTICS) [Concomitant]
  12. CORTICOSTEROIDS [Concomitant]
  13. HORMONE ANTAGONISTS AND RELATED AGENTS [Concomitant]

REACTIONS (2)
  - Hyponatraemia [None]
  - Lower gastrointestinal haemorrhage [None]
